FAERS Safety Report 9913111 (Version 2)
Quarter: 2014Q1

REPORT INFORMATION
  Report Type: Spontaneous
  Country: FR (occurrence: FR)
  Receive Date: 20140220
  Receipt Date: 20140220
  Transmission Date: 20141002
  Serious: Yes (Disabling)
  Sender: FDA-Public Use
  Company Number: FR-SA-2013SA127665

PATIENT
  Age: 58 Year
  Sex: Female

DRUGS (6)
  1. RIFADINE [Suspect]
     Indication: LYMPH NODE TUBERCULOSIS
     Route: 048
     Dates: start: 20130731, end: 20131123
  2. PIRILENE [Suspect]
     Indication: LYMPH NODE TUBERCULOSIS
     Route: 048
     Dates: start: 20130731, end: 20130930
  3. RIMIFON [Suspect]
     Indication: LYMPH NODE TUBERCULOSIS
     Route: 048
     Dates: start: 20130731, end: 20131024
  4. RIMIFON [Suspect]
     Indication: LYMPH NODE TUBERCULOSIS
     Route: 048
     Dates: start: 20131024, end: 20131114
  5. RIMIFON [Suspect]
     Indication: LYMPH NODE TUBERCULOSIS
     Route: 048
     Dates: start: 20131114, end: 20131123
  6. DEXAMBUTOL [Suspect]
     Indication: LYMPH NODE TUBERCULOSIS
     Route: 065
     Dates: start: 20130731, end: 20130930

REACTIONS (1)
  - Alanine aminotransferase increased [Recovered/Resolved]
